FAERS Safety Report 11225581 (Version 2)
Quarter: 2015Q3

REPORT INFORMATION
  Report Type: Spontaneous
  Country: US (occurrence: US)
  Receive Date: 20150629
  Receipt Date: 20150720
  Transmission Date: 20151125
  Serious: No
  Sender: FDA-Public Use
  Company Number: US-TAKEDA-2015TUS008376

PATIENT
  Age: 51 Year
  Sex: Female
  Weight: 71.2 kg

DRUGS (3)
  1. CONTRAVE [Suspect]
     Active Substance: BUPROPION HYDROCHLORIDE\NALTREXONE HYDROCHLORIDE
     Indication: OVERWEIGHT
     Dosage: 8MG/90MG
     Route: 048
     Dates: start: 20150209
  2. LEXAPRO [Concomitant]
     Active Substance: ESCITALOPRAM OXALATE
     Indication: DEPRESSION
     Dosage: 5 MG, QD
     Route: 048
  3. CONTRAVE [Suspect]
     Active Substance: BUPROPION HYDROCHLORIDE\NALTREXONE HYDROCHLORIDE
     Dosage: 16MG/180MG
     Route: 048
     Dates: end: 201503

REACTIONS (1)
  - Ageusia [Not Recovered/Not Resolved]

NARRATIVE: CASE EVENT DATE: 201503
